FAERS Safety Report 9069661 (Version 13)
Quarter: 2018Q1

REPORT INFORMATION
  Report Type: Spontaneous
  Country: JP (occurrence: JP)
  Receive Date: 20130215
  Receipt Date: 20180202
  Transmission Date: 20180509
  Serious: Yes (Hospitalization, Disabling, Other)
  Sender: FDA-Public Use
  Company Number: JP-B.I. PHARMACEUTICALS,INC./RIDGEFIELD-2013-BI-04030NB

PATIENT
  Age: 0 Day
  Sex: Male
  Weight: 1.41 kg

DRUGS (4)
  1. BAKUMONDOTO [Concomitant]
     Active Substance: HERBALS
     Indication: PRODUCT USED FOR UNKNOWN INDICATION
     Route: 064
  2. MICOMBI COMBINATION [Suspect]
     Active Substance: HYDROCHLOROTHIAZIDE\TELMISARTAN
     Indication: HYPERTENSION
     Route: 064
     Dates: start: 20130104, end: 20130206
  3. AMLODIPINE [Concomitant]
     Active Substance: AMLODIPINE BESYLATE
     Indication: HYPERTENSION
     Route: 064
  4. MUCODYNE [Concomitant]
     Active Substance: CARBOCYSTEINE
     Indication: PRODUCT USED FOR UNKNOWN INDICATION
     Route: 064

REACTIONS (5)
  - Hypotension [Recovering/Resolving]
  - Oliguria [Recovering/Resolving]
  - Renal impairment [Not Recovered/Not Resolved]
  - Foetal growth restriction [Unknown]
  - Renal tubular acidosis [Unknown]

NARRATIVE: CASE EVENT DATE: 20130206
